FAERS Safety Report 8050614-5 (Version None)
Quarter: 2012Q1

REPORT INFORMATION
  Report Type: 
  Country: None (occurrence: None)
  Receive Date: 20120117
  Receipt Date: 20120117
  Transmission Date: 20120608
  Serious: Yes (Other)
  Sender: FDA-Public Use
  Company Number: None

PATIENT
  Age: 59 Year
  Sex: Female
  Weight: 127 kg

DRUGS (1)
  1. EQUATE ORIGINAL NASAL SPRAY [Suspect]
     Indication: NASAL CONGESTION
     Dosage: 2 SPRAYS
     Route: 045
     Dates: start: 20111211, end: 20111213

REACTIONS (2)
  - AGEUSIA [None]
  - ANOSMIA [None]
